FAERS Safety Report 9018947 (Version 1)
Quarter: 2013Q1

REPORT INFORMATION
  Report Type: Report from Study
  Country: US (occurrence: US)
  Receive Date: 20130118
  Receipt Date: 20130118
  Transmission Date: 20140127
  Serious: Yes (Hospitalization)
  Sender: FDA-Public Use
  Company Number: US-ABBOTT-13P-163-1034523-00

PATIENT
  Age: 36 None
  Sex: Male
  Weight: 89.44 kg

DRUGS (2)
  1. HUMIRA [Suspect]
     Indication: ANKYLOSING SPONDYLITIS
     Dates: start: 20110408
  2. TRAMADOL [Concomitant]
     Indication: PAIN

REACTIONS (6)
  - Uveitis [Not Recovered/Not Resolved]
  - Foreign body in eye [Recovered/Resolved]
  - Eye pain [Recovering/Resolving]
  - Eye swelling [Recovering/Resolving]
  - Pain in extremity [Not Recovered/Not Resolved]
  - Fatigue [Not Recovered/Not Resolved]
